FAERS Safety Report 5653969-1 (Version None)
Quarter: 2008Q1

REPORT INFORMATION
  Report Type: 
  Country: None (occurrence: None)
  Receive Date: 20080306
  Receipt Date: 20080227
  Transmission Date: 20080703
  Serious: Yes (Hospitalization)
  Sender: FDA-Public Use
  Company Number: IL-WYE-H02852808

PATIENT
  Age: 3 Year
  Sex: Female
  Weight: 16.5 kg

DRUGS (1)
  1. CHILDREN'S ADVIL [Suspect]
     Indication: PYREXIA
     Dosage: UNKNOWN
     Route: 048
     Dates: start: 20080217, end: 20080220

REACTIONS (1)
  - RENAL FAILURE [None]
